FAERS Safety Report 5727461-X (Version None)
Quarter: 2008Q2

REPORT INFORMATION
  Report Type: 
  Country: None (occurrence: None)
  Receive Date: 20080505
  Receipt Date: 20080428
  Transmission Date: 20081010
  Serious: Yes (Hospitalization, Other)
  Sender: FDA-Public Use
  Company Number: BE-ABBOTT-08P-013-0448865-00

PATIENT
  Sex: Female

DRUGS (3)
  1. HUMIRA [Suspect]
     Indication: PSORIASIS
  2. CLOTIAZEPAM [Concomitant]
     Indication: DRUG USE FOR UNKNOWN INDICATION
  3. ROSUVASTATIN [Concomitant]
     Indication: DRUG USE FOR UNKNOWN INDICATION

REACTIONS (6)
  - ADENOCARCINOMA [None]
  - COLON ADENOMA [None]
  - COLON CANCER [None]
  - COLON NEOPLASM [None]
  - COLONIC POLYP [None]
  - DYSPLASIA [None]
